FAERS Safety Report 21549150 (Version 1)
Quarter: 2022Q4

REPORT INFORMATION
  Report Type: Spontaneous
  Country: US (occurrence: None)
  Receive Date: 20221102
  Receipt Date: 20221102
  Transmission Date: 20230113
  Serious: No
  Sender: FDA-Public Use
  Company Number: None

PATIENT
  Sex: 0

DRUGS (1)
  1. OLANZAPINE [Suspect]
     Active Substance: OLANZAPINE
     Indication: Negative thoughts
     Dosage: OTHER QUANTITY : 30 TABLET(S);?FREQUENCY : AT BEDTIME;?
     Route: 048

REACTIONS (6)
  - Confusional state [None]
  - Somnolence [None]
  - Gait disturbance [None]
  - Tremor [None]
  - Paraesthesia [None]
  - Formication [None]

NARRATIVE: CASE EVENT DATE: 20221101
